FAERS Safety Report 5840472-9 (Version None)
Quarter: 2008Q3

REPORT INFORMATION
  Report Type: 
  Country: None (occurrence: None)
  Receive Date: 20080811
  Receipt Date: 20080805
  Transmission Date: 20090109
  Serious: Yes (Other)
  Sender: FDA-Public Use
  Company Number: US-ASTRAZENECA-2008UW15418

PATIENT
  Age: 75 Year
  Sex: Female
  Weight: 74.8 kg

DRUGS (2)
  1. ARIMIDEX [Suspect]
     Indication: BREAST CANCER
     Route: 048
     Dates: start: 20030101
  2. HIGH BLOOD PRESSURE PILLS [Concomitant]

REACTIONS (1)
  - BLINDNESS UNILATERAL [None]
